FAERS Safety Report 17343625 (Version 1)
Quarter: 2020Q1

REPORT INFORMATION
  Report Type: Spontaneous
  Country: US (occurrence: US)
  Receive Date: 20200129
  Receipt Date: 20200129
  Transmission Date: 20200409
  Serious: Yes (Death, Hospitalization)
  Sender: FDA-Public Use
  Company Number: US-JNJFOC-20200134706

PATIENT
  Age: 14 Year
  Sex: Female

DRUGS (3)
  1. HYDROXYCHLOROQUINE [Suspect]
     Active Substance: HYDROXYCHLOROQUINE
     Indication: SUICIDE ATTEMPT
     Route: 048
  2. IBUPROFEN. [Suspect]
     Active Substance: IBUPROFEN
     Indication: SUICIDE ATTEMPT
     Dosage: 200 MG TABLET
     Route: 048
  3. NAPROXEN. [Suspect]
     Active Substance: NAPROXEN
     Indication: SUICIDE ATTEMPT
     Dosage: 750MG TABLETS
     Route: 048

REACTIONS (13)
  - Cardiac arrest [Fatal]
  - Blood calcium increased [Fatal]
  - Haemoptysis [Fatal]
  - Hypotension [Fatal]
  - Blood sodium increased [Fatal]
  - Oxygen saturation decreased [Fatal]
  - Blood glucose increased [Fatal]
  - Toxicity to various agents [Fatal]
  - Pulmonary oedema [Fatal]
  - Blood potassium decreased [Fatal]
  - White blood cell count increased [Fatal]
  - Haemoglobin decreased [Fatal]
  - Haematocrit decreased [Fatal]
